FAERS Safety Report 9254639 (Version 1)
Quarter: 2013Q1

REPORT INFORMATION
  Report Type: Spontaneous
  Country: US (occurrence: None)
  Receive Date: 20121210
  Receipt Date: 20121210
  Transmission Date: 20140127
  Serious: No
  Sender: FDA-Public Use
  Company Number: 1209USA003509

PATIENT
  Age: 82 Year
  Sex: Male

DRUGS (9)
  1. ZIOPTAN [Suspect]
     Indication: GLAUCOMA
     Dates: start: 20120906
  2. COSOPT [Suspect]
     Dosage: 1 DROP IN EACH EYE, QD, OPHTHALMIC
     Route: 047
  3. RESTASIS (CYCLOSPORINE) [Concomitant]
  4. RAPAFLO (SILODOSIN) [Concomitant]
  5. ACCUPRO (QUINAPRIL HYDROCHLORIDE) [Concomitant]
  6. PLAVIX (CLOPIDOGREL BISULFATE) [Concomitant]
  7. LIPITOR (ATORVASTATIN CALCIUM) [Concomitant]
  8. SPIRONOLACTONE (SPIRONOLACTONE) [Concomitant]
  9. PROCARDIA (NIFEDIPINE) [Concomitant]

REACTIONS (2)
  - Eye irritation [None]
  - Accidental exposure to product [None]
